FAERS Safety Report 25043608 (Version 4)
Quarter: 2025Q3

REPORT INFORMATION
  Report Type: Spontaneous
  Country: US (occurrence: US)
  Receive Date: 20250306
  Receipt Date: 20250731
  Transmission Date: 20251021
  Serious: No
  Sender: BIOGEN
  Company Number: US-BIOGEN-2024BI01293685

PATIENT
  Sex: Female

DRUGS (5)
  1. VUMERITY [Suspect]
     Active Substance: DIROXIMEL FUMARATE
     Indication: Multiple sclerosis
     Route: 050
     Dates: start: 20241209, end: 20241216
  2. VUMERITY [Suspect]
     Active Substance: DIROXIMEL FUMARATE
     Route: 050
     Dates: start: 20241216
  3. LEXAPRO [Concomitant]
     Active Substance: ESCITALOPRAM OXALATE
     Route: 050
  4. GABAPENTIN [Concomitant]
     Active Substance: GABAPENTIN
     Route: 050
  5. PENICILLIN [Concomitant]
     Active Substance: PENICILLIN
     Route: 050

REACTIONS (8)
  - Product dose omission in error [Not Recovered/Not Resolved]
  - Muscle spasticity [Unknown]
  - Nasopharyngitis [Unknown]
  - Illness [Unknown]
  - Attention deficit hyperactivity disorder [Unknown]
  - Tension headache [Recovered/Resolved]
  - Sinusitis [Recovered/Resolved]
  - Flushing [Not Recovered/Not Resolved]

NARRATIVE: CASE EVENT DATE: 20240101
